FAERS Safety Report 17258324 (Version 1)
Quarter: 2020Q1

REPORT INFORMATION
  Report Type: Spontaneous
  Country: US (occurrence: US)
  Receive Date: 20200110
  Receipt Date: 20200110
  Transmission Date: 20200409
  Serious: No
  Sender: FDA-Public Use
  Company Number: US-EPIC PHARMA LLC-2019EPC00311

PATIENT
  Sex: Female
  Weight: 54.42 kg

DRUGS (2)
  1. VITAMINS [Concomitant]
     Active Substance: VITAMINS
  2. ESTRADIOL. [Suspect]
     Active Substance: ESTRADIOL
     Indication: HYSTERECTOMY
     Dosage: 0.5 MG, 1X/DAY
     Route: 048
     Dates: start: 201909

REACTIONS (4)
  - Alopecia [Not Recovered/Not Resolved]
  - Feeling hot [Not Recovered/Not Resolved]
  - Product substitution issue [Not Recovered/Not Resolved]
  - Drug ineffective [Not Recovered/Not Resolved]

NARRATIVE: CASE EVENT DATE: 2019
